FAERS Safety Report 5824496-3 (Version None)
Quarter: 2008Q3

REPORT INFORMATION
  Report Type: 
  Country: None (occurrence: None)
  Receive Date: 20080722
  Receipt Date: 20080707
  Transmission Date: 20090109
  Serious: Yes (Hospitalization)
  Sender: FDA-Public Use
  Company Number: DSJ-2008-06602

PATIENT
  Age: 69 Year
  Sex: Female

DRUGS (8)
  1. OLMETEC (OLMESARTAN MEDOXOMIL) (TABLET) (OLMESARTAN L MEDOXOMIL) [Suspect]
     Indication: HYPERTENSION
     Dosage: 5 MG (5 MG, 1 IN 1 D), PER ORAL
     Route: 048
     Dates: end: 20080501
  2. NORVASC [Suspect]
     Dosage: 2.5 MG (2.5 MG, 1 IN 1 D), PER ORAL
     Route: 048
     Dates: end: 20080501
  3. PARIET (RABEPRAZOLE SODIUM) (TABLET) (RABEPRAZOLE SODIUM) [Suspect]
     Indication: REFLUX OESOPHAGITIS
     Dosage: 20 MG (20 MG, 1 IN 1 D), PER ORAL
     Route: 048
     Dates: end: 20080501
  4. PREDONINE (PREDNISOLONE) (TABLET) (PREDNISOLONE) [Suspect]
     Indication: RHEUMATOID ARTHRITIS
     Dosage: 5 MG (5 MG, 1 IN 1 D), PER ORAL
  5. BASEN (VOGLIEOSE) (VOGLIBOSE) [Suspect]
     Dosage: 0.6 MG (0.3 MG, 2 IN 1 D), PER ORAL
     Route: 048
     Dates: end: 20080501
  6. CHOLEBINE MINI (COLESTILAN) (COLESTILAN) [Suspect]
     Indication: LIPIDS ABNORMAL
     Dosage: 2 SACHES , PER ORAL
     Route: 048
     Dates: end: 20080501
  7. DEPAS (ETIZOLAM) (ETIZOLAM) [Suspect]
     Dosage: PER ORAL
     Route: 048
     Dates: end: 20080501
  8. SELBEX (TEPRENONE) (CAPSULE) (TEPRENONE) [Suspect]
     Indication: REFLUX OESOPHAGITIS
     Dosage: PER ORAL
     Route: 048
     Dates: end: 20080501

REACTIONS (3)
  - ABDOMINAL PAIN [None]
  - HEPATIC STEATOSIS [None]
  - HEPATITIS [None]
